FAERS Safety Report 20696515 (Version 1)
Quarter: 2022Q2

REPORT INFORMATION
  Report Type: Report from Study
  Country: US (occurrence: US)
  Receive Date: 20220411
  Receipt Date: 20220411
  Transmission Date: 20220721
  Serious: No
  Sender: FDA-Public Use
  Company Number: US-TRAVERE-2022TVT00090

PATIENT
  Age: 21 Year
  Sex: Male

DRUGS (1)
  1. CHOLIC ACID [Suspect]
     Active Substance: CHOLIC ACID
     Indication: Inborn error in primary bile acid synthesis
     Dosage: 500 MG / BID
     Route: 048
     Dates: start: 20211204

REACTIONS (2)
  - Crying [Unknown]
  - Abnormal sleep-related event [Unknown]
